FAERS Safety Report 7703330-0 (Version None)
Quarter: 2011Q3

REPORT INFORMATION
  Report Type: 
  Country: None (occurrence: None)
  Receive Date: 20110823
  Receipt Date: 20110811
  Transmission Date: 20111222
  Serious: Yes (Hospitalization)
  Sender: FDA-Public Use
  Company Number: JP-ELI_LILLY_AND_COMPANY-JP201106002307

PATIENT
  Age: 60 Year
  Sex: Female

DRUGS (1)
  1. ZYPREXA [Suspect]
     Indication: SCHIZOPHRENIA
     Dosage: 10 MG, TID
     Route: 048
     Dates: start: 20110601, end: 20110608

REACTIONS (2)
  - OVERDOSE [None]
  - HOSPITALISATION [None]
